FAERS Safety Report 24021638 (Version 2)
Quarter: 2024Q2

REPORT INFORMATION
  Report Type: Spontaneous
  Country: FR (occurrence: FR)
  Receive Date: 20240627
  Receipt Date: 20240628
  Transmission Date: 20240716
  Serious: No
  Sender: FDA-Public Use
  Company Number: FR-ROCHE-3527749

PATIENT
  Age: 80 Year
  Sex: Male

DRUGS (4)
  1. VABYSMO [Suspect]
     Active Substance: FARICIMAB\FARICIMAB-SVOA
     Indication: Age-related macular degeneration
     Route: 050
     Dates: start: 20231218
  2. VABYSMO [Suspect]
     Active Substance: FARICIMAB\FARICIMAB-SVOA
     Route: 050
     Dates: start: 20240115
  3. VABYSMO [Suspect]
     Active Substance: FARICIMAB\FARICIMAB-SVOA
     Route: 050
     Dates: start: 20240212
  4. VABYSMO [Suspect]
     Active Substance: FARICIMAB\FARICIMAB-SVOA
     Route: 050
     Dates: start: 20240325

REACTIONS (1)
  - Vitreous disorder [Recovering/Resolving]
